FAERS Safety Report 7793530-6 (Version None)
Quarter: 2011Q4

REPORT INFORMATION
  Report Type: 
  Country: None (occurrence: None)
  Receive Date: 20111003
  Receipt Date: 20110203
  Transmission Date: 20120403
  Serious: No
  Sender: FDA-Public Use
  Company Number: US-BAYER-2011-012164

PATIENT
  Age: 63 Year
  Sex: Male
  Weight: 88.889 kg

DRUGS (5)
  1. EXENATIDE [Concomitant]
     Indication: DIABETES MELLITUS
     Dosage: UNK
  2. CHOLESTEROL- AND TRIGLYCERIDE REDUCERS [Concomitant]
     Dosage: UNK
     Dates: start: 20080101, end: 20101201
  3. CIPRO [Suspect]
     Indication: PROSTATE INFECTION
     Dosage: UNK
     Dates: start: 20101201
  4. LISINOPRIL [Concomitant]
     Indication: HYPERTENSION
     Dosage: UNK
  5. ACETAMINOPHEN [Concomitant]
     Indication: PRODUCT USED FOR UNKNOWN INDICATION
     Dosage: UNK

REACTIONS (1)
  - MYALGIA [None]
